FAERS Safety Report 4742390-6 (Version None)
Quarter: 2005Q3

REPORT INFORMATION
  Report Type: 
  Country: None (occurrence: None)
  Receive Date: 20050808
  Receipt Date: 20050725
  Transmission Date: 20060218
  Serious: Yes (Death, Hospitalization)
  Sender: FDA-Public Use
  Company Number: WAES 0507USA04176

PATIENT
  Age: 76 Year
  Sex: Male

DRUGS (6)
  1. PROSCAR [Suspect]
     Indication: BENIGN PROSTATIC HYPERPLASIA
     Dosage: 5 MG/DAILY/ PO
     Route: 048
     Dates: start: 20000718, end: 20050706
  2. FLOMAX [Suspect]
     Indication: BENIGN PROSTATIC HYPERPLASIA
     Dosage: 0.4 MG/ DAILY/ PO
     Route: 048
     Dates: start: 20031008, end: 20050706
  3. ACCUPRIL [Concomitant]
  4. CHLORAZEPATE [Concomitant]
  5. CLARINEX [Concomitant]
  6. HYDROCHLOROTHIAZIDE (+) TRIMETER [Concomitant]

REACTIONS (13)
  - ATELECTASIS [None]
  - BLOOD PRESSURE SYSTOLIC INCREASED [None]
  - CHEST DISCOMFORT [None]
  - CONTUSION [None]
  - DIABETES MELLITUS [None]
  - DIZZINESS [None]
  - FALL [None]
  - PLEURAL EFFUSION [None]
  - PNEUMONIA [None]
  - PULMONARY EMBOLISM [None]
  - RESPIRATORY FAILURE [None]
  - RESPIRATORY RATE INCREASED [None]
  - WHITE BLOOD CELL COUNT INCREASED [None]
